FAERS Safety Report 6255335-7 (Version None)
Quarter: 2009Q3

REPORT INFORMATION
  Report Type: 
  Country: None (occurrence: None)
  Receive Date: 20090702
  Receipt Date: 20090331
  Transmission Date: 20100115
  Serious: Yes (Hospitalization)
  Sender: FDA-Public Use
  Company Number: DE-B.I. PHARMACEUTICALS,INC./RIDGEFIELD-2008-DE-00925DE

PATIENT
  Sex: Female
  Weight: 92 kg

DRUGS (2)
  1. AGGRENOX [Suspect]
     Indication: CEREBROVASCULAR ACCIDENT PROPHYLAXIS
     Dosage: 200, 2X
     Route: 048
  2. AGGRENOX [Suspect]
     Dosage: 200 MG
     Route: 048

REACTIONS (1)
  - VAGINAL HAEMORRHAGE [None]
